FAERS Safety Report 8359240-1 (Version None)
Quarter: 2012Q2

REPORT INFORMATION
  Report Type: 
  Country: None (occurrence: None)
  Receive Date: 20120514
  Receipt Date: 20120514
  Transmission Date: 20120825
  Serious: Yes (Other)
  Sender: FDA-Public Use
  Company Number: None

PATIENT
  Age: 58 Year
  Sex: Male
  Weight: 99.7913 kg

DRUGS (1)
  1. VIIBRYM 40MG TARGET PHARMACY KCMO CHOUTEAU [Suspect]
     Indication: ANXIETY

REACTIONS (6)
  - NERVOUS SYSTEM DISORDER [None]
  - FEELING ABNORMAL [None]
  - PARAESTHESIA [None]
  - MOVEMENT DISORDER [None]
  - ASTHENIA [None]
  - TINNITUS [None]
